FAERS Safety Report 12776073 (Version 2)
Quarter: 2016Q4

REPORT INFORMATION
  Report Type: Spontaneous
  Country: US (occurrence: US)
  Receive Date: 20160923
  Receipt Date: 20161004
  Transmission Date: 20170207
  Serious: Yes (Hospitalization, Other)
  Sender: FDA-Public Use
  Company Number: US-009507513-1609USA007685

PATIENT
  Age: 40 Year
  Sex: Female

DRUGS (2)
  1. BCG VACCINE USP [Suspect]
     Active Substance: BCG VACCINE
     Indication: TUBERCULOSIS BLADDER
     Dosage: UNK
     Dates: start: 20150924
  2. INVANZ [Suspect]
     Active Substance: ERTAPENEM SODIUM
     Dosage: UNK

REACTIONS (8)
  - Cellulitis [Not Recovered/Not Resolved]
  - Neuralgia [Not Recovered/Not Resolved]
  - Hypoaesthesia [Not Recovered/Not Resolved]
  - Diarrhoea [Not Recovered/Not Resolved]
  - Accidental exposure to product [Unknown]
  - Synovial cyst [Not Recovered/Not Resolved]
  - Ligament sprain [Not Recovered/Not Resolved]
  - Granuloma [Not Recovered/Not Resolved]

NARRATIVE: CASE EVENT DATE: 20150924
